FAERS Safety Report 15528818 (Version 2)
Quarter: 2018Q4

REPORT INFORMATION
  Report Type: Report from Study
  Country: AT (occurrence: AT)
  Receive Date: 20181020
  Receipt Date: 20181119
  Transmission Date: 20190205
  Serious: Yes (Life-Threatening, Hospitalization)
  Sender: FDA-Public Use
  Company Number: AT-B.I. PHARMACEUTICALS,INC./RIDGEFIELD-2018-BI-050728

PATIENT
  Age: 78 Year
  Sex: Male

DRUGS (4)
  1. FLOMAX [Concomitant]
     Active Substance: TAMSULOSIN HYDROCHLORIDE
     Indication: PRODUCT USED FOR UNKNOWN INDICATION
     Route: 065
  2. PRADAXA [Suspect]
     Active Substance: DABIGATRAN ETEXILATE MESYLATE
     Indication: ATRIAL FIBRILLATION
     Route: 065
  3. BISOPROLOL [Concomitant]
     Active Substance: BISOPROLOL
     Indication: PRODUCT USED FOR UNKNOWN INDICATION
     Route: 065
  4. SIMVASTATIN. [Concomitant]
     Active Substance: SIMVASTATIN
     Indication: PRODUCT USED FOR UNKNOWN INDICATION
     Route: 065

REACTIONS (12)
  - Delirium [Recovered/Resolved]
  - Injury [Recovered/Resolved]
  - Multiple injuries [Recovered/Resolved]
  - Hypotension [Recovered/Resolved]
  - Periprosthetic fracture [Recovered/Resolved]
  - Loss of consciousness [Recovered/Resolved]
  - Sternal fracture [Recovered/Resolved]
  - Pain in extremity [Recovered/Resolved]
  - Craniocerebral injury [Recovered/Resolved]
  - Pulmonary contusion [Recovered/Resolved]
  - Traumatic intracranial haemorrhage [Recovered/Resolved]
  - Rib fracture [Recovered/Resolved]
